FAERS Safety Report 10245057 (Version 2)
Quarter: 2014Q2

REPORT INFORMATION
  Report Type: Spontaneous
  Country: US (occurrence: US)
  Receive Date: 20140618
  Receipt Date: 20140618
  Transmission Date: 20141212
  Serious: No
  Sender: FDA-Public Use
  Company Number: US-GALDERMA-US14000790

PATIENT
  Age: 71 Year
  Sex: Female

DRUGS (6)
  1. MIRVASO (BRIMONIDINE) TOPICAL GEL, 0.33% [Suspect]
     Indication: ERYTHEMA
     Dosage: 0.33%
     Route: 061
     Dates: start: 20140218, end: 20140220
  2. NEXIUM (ESOMEPRAZOLE MAGNESIUM) [Concomitant]
     Indication: GASTROOESOPHAGEAL REFLUX DISEASE
     Route: 048
  3. LOPERAMIDE [Concomitant]
     Indication: IRRITABLE BOWEL SYNDROME
     Route: 048
     Dates: start: 1994
  4. CALCIUM [Concomitant]
     Dosage: 2000 MG
     Route: 048
  5. VITAMIN D [Concomitant]
     Dosage: 5 PILLS A DAY
     Route: 048
  6. AVAPRO (IRBESARTAN) [Concomitant]
     Indication: NERVOUS SYSTEM DISORDER
     Dosage: 150 MG
     Route: 048
     Dates: start: 2008

REACTIONS (14)
  - Throat tightness [Recovering/Resolving]
  - Dyspnoea [Recovering/Resolving]
  - Swelling face [Recovering/Resolving]
  - Nasal oedema [Recovering/Resolving]
  - Blister [Recovering/Resolving]
  - Condition aggravated [Recovering/Resolving]
  - Eye irritation [Not Recovered/Not Resolved]
  - Skin exfoliation [Not Recovered/Not Resolved]
  - Feeling hot [Recovering/Resolving]
  - Skin burning sensation [Recovering/Resolving]
  - Erythema [Recovering/Resolving]
  - Pain of skin [Not Recovered/Not Resolved]
  - Drug ineffective for unapproved indication [Recovering/Resolving]
  - Off label use [Recovered/Resolved]
